FAERS Safety Report 23030324 (Version 9)
Quarter: 2024Q2

REPORT INFORMATION
  Report Type: Report from Study
  Country: DE (occurrence: DE)
  Receive Date: 20231005
  Receipt Date: 20240417
  Transmission Date: 20240715
  Serious: Yes (Hospitalization, Other)
  Sender: FDA-Public Use
  Company Number: DE-TAKEDA-2023TUS094677

PATIENT
  Age: 74 Year
  Sex: Male

DRUGS (15)
  1. ANTIHEMOPHILIC FACTOR, PEGYLATED (MW 20000) HUMAN SEQUENCE RECOMBINANT [Suspect]
     Active Substance: ANTIHEMOPHILIC FACTOR, PEGYLATED (MW 20000) HUMAN SEQUENCE RECOMBINANT
     Indication: Factor VIII deficiency
     Dosage: 40 INTERNATIONAL UNIT/KILOGRAM, 3/WEEK
     Route: 065
     Dates: start: 20210908
  2. ANTIHEMOPHILIC FACTOR, PEGYLATED (MW 20000) HUMAN SEQUENCE RECOMBINANT [Suspect]
     Active Substance: ANTIHEMOPHILIC FACTOR, PEGYLATED (MW 20000) HUMAN SEQUENCE RECOMBINANT
     Indication: Factor VIII deficiency
     Dosage: 40 INTERNATIONAL UNIT/KILOGRAM, 3/WEEK
     Route: 065
     Dates: start: 20210908
  3. ANTIHEMOPHILIC FACTOR, PEGYLATED (MW 20000) HUMAN SEQUENCE RECOMBINANT [Suspect]
     Active Substance: ANTIHEMOPHILIC FACTOR, PEGYLATED (MW 20000) HUMAN SEQUENCE RECOMBINANT
     Indication: Factor VIII deficiency
     Dosage: 40 INTERNATIONAL UNIT/KILOGRAM, 3/WEEK
     Route: 065
     Dates: start: 20210908
  4. CANDESARTAN [Concomitant]
     Active Substance: CANDESARTAN
     Indication: Hypertension
     Dosage: 1 DOSAGE FORM, QD
     Route: 048
     Dates: start: 20191218
  5. BISOPROLOL [Concomitant]
     Active Substance: BISOPROLOL\BISOPROLOL FUMARATE
     Indication: Hypertension
     Dosage: 5 MILLIGRAM, QD
     Route: 048
     Dates: start: 20191218
  6. PANTOPRAZOLE SODIUM [Concomitant]
     Active Substance: PANTOPRAZOLE SODIUM
     Indication: Gastrointestinal disorder prophylaxis
     Dosage: 40 MILLIGRAM, QD
     Route: 048
     Dates: start: 20191218
  7. ALLOPURINOL [Concomitant]
     Active Substance: ALLOPURINOL
     Indication: Hyperuricaemia
     Dosage: 300 MILLIGRAM, QD
     Route: 065
     Dates: start: 20191218
  8. SYMTUZA [Concomitant]
     Active Substance: COBICISTAT\DARUNAVIR\EMTRICITABINE\TENOFOVIR ALAFENAMIDE
     Indication: HIV infection
     Dosage: UNK UNK, QD
     Route: 048
     Dates: start: 20191218
  9. VITAMIN K [Concomitant]
     Active Substance: PHYTONADIONE
     Indication: Coagulation factor deficiency
     Dosage: 10 MILLIGRAM, SINGLE
     Route: 048
     Dates: start: 20230731, end: 20230731
  10. TRANEXAMIC ACID [Concomitant]
     Active Substance: TRANEXAMIC ACID
     Indication: Haemorrhage
     Dosage: 1 GRAM, SINGLE
     Route: 048
     Dates: start: 20230803, end: 20230803
  11. TAMSULOSIN [Concomitant]
     Active Substance: TAMSULOSIN
     Indication: Urinary tract disorder
     Dosage: 0.4 MILLIGRAM, QD
     Route: 048
     Dates: start: 20230810
  12. LINEZOLID [Concomitant]
     Active Substance: LINEZOLID
  13. FOSFOMYCIN [Concomitant]
     Active Substance: FOSFOMYCIN
     Indication: Bacterial infection
     Dosage: UNK
     Route: 048
     Dates: start: 202310, end: 202311
  14. DAPTOMYCIN [Concomitant]
     Active Substance: DAPTOMYCIN
     Indication: Bacterial infection
     Dosage: UNK
     Route: 048
     Dates: start: 202310, end: 202311
  15. NALOXONE HYDROCHLORIDE\TILIDINE HYDROCHLORIDE [Concomitant]
     Active Substance: NALOXONE HYDROCHLORIDE\TILIDINE HYDROCHLORIDE
     Indication: Pain
     Dosage: UNK UNK, TID
     Route: 048

REACTIONS (19)
  - Thrombocytopenia [Recovered/Resolved]
  - Acute kidney injury [Recovered/Resolved]
  - Pulmonary fibrosis [Not Recovered/Not Resolved]
  - Nephrosclerosis [Not Recovered/Not Resolved]
  - Melaena [Recovered/Resolved]
  - Adenocarcinoma gastric [Not Recovered/Not Resolved]
  - Pneumonia [Recovered/Resolved]
  - Atrial fibrillation [Not Recovered/Not Resolved]
  - Mitral valve incompetence [Not Recovered/Not Resolved]
  - Tricuspid valve incompetence [Not Recovered/Not Resolved]
  - Cardiac failure [Not Recovered/Not Resolved]
  - Renal failure [Not Recovered/Not Resolved]
  - Skin ulcer [Not Recovered/Not Resolved]
  - Emphysema [Not Recovered/Not Resolved]
  - Urinary tract disorder [Recovered/Resolved]
  - Haemoglobin decreased [Recovered/Resolved]
  - Gouty arthritis [Recovering/Resolving]
  - Benign prostatic hyperplasia [Not Recovered/Not Resolved]
  - Vitamin D deficiency [Not Recovered/Not Resolved]

NARRATIVE: CASE EVENT DATE: 20230101
